FAERS Safety Report 6804769-8 (Version None)
Quarter: 2010Q2

REPORT INFORMATION
  Report Type: 
  Country: None (occurrence: None)
  Receive Date: 20100628
  Receipt Date: 20070515
  Transmission Date: 20101027
  Serious: No
  Sender: FDA-Public Use
  Company Number: US-PFIZER INC-2007039249

PATIENT
  Sex: Male

DRUGS (3)
  1. GEODON [Suspect]
     Indication: BIPOLAR I DISORDER
     Dates: start: 20070401
  2. WELLBUTRIN [Concomitant]
  3. LITHIUM [Concomitant]

REACTIONS (1)
  - NAUSEA [None]
